FAERS Safety Report 9527657 (Version 1)
Quarter: 2013Q3

REPORT INFORMATION
  Report Type: Spontaneous
  Country: US (occurrence: None)
  Receive Date: 20130913
  Receipt Date: 20130913
  Transmission Date: 20140515
  Serious: Yes (Life-Threatening)
  Sender: FDA-Public Use
  Company Number: None

PATIENT
  Age: 71 Year
  Sex: Female
  Weight: 56.25 kg

DRUGS (1)
  1. PROAIR HFA [Suspect]
     Indication: ASTHMA
     Dosage: 1 PUFF A NEEDED INHALATION
     Route: 055
     Dates: start: 20130705, end: 20130901

REACTIONS (4)
  - Device failure [None]
  - Dyspnoea [None]
  - Device malfunction [None]
  - Product quality issue [None]
